FAERS Safety Report 16977588 (Version 1)
Quarter: 2019Q4

REPORT INFORMATION
  Report Type: Spontaneous
  Country: FR (occurrence: FR)
  Receive Date: 20191031
  Receipt Date: 20191031
  Transmission Date: 20200122
  Serious: Yes (Hospitalization)
  Sender: FDA-Public Use
  Company Number: FR-BAXTER-2019BAX021233

PATIENT
  Sex: Male
  Weight: 45.3 kg

DRUGS (1)
  1. GLUCOSE 5% VIAFLO, SOLUTION POUR PERFUSION [Suspect]
     Active Substance: DEXTROSE
     Indication: DEHYDRATION
     Route: 042
     Dates: start: 20180911, end: 20180913

REACTIONS (5)
  - Hyponatraemia [Recovered/Resolved]
  - Condition aggravated [Recovered/Resolved]
  - Product dose omission [Recovered/Resolved]
  - Hypokalaemia [Recovered/Resolved]
  - Confusional state [Recovered/Resolved]

NARRATIVE: CASE EVENT DATE: 20180911
